FAERS Safety Report 7389917-6 (Version None)
Quarter: 2011Q2

REPORT INFORMATION
  Report Type: 
  Country: None (occurrence: None)
  Receive Date: 20110401
  Receipt Date: 20110324
  Transmission Date: 20111010
  Serious: Yes (Other)
  Sender: FDA-Public Use
  Company Number: US-AMGEN-USASP2011016012

PATIENT
  Age: 72 Year
  Sex: Female

DRUGS (2)
  1. SENSIPAR [Suspect]
     Indication: RENAL FAILURE
     Dosage: 30 MG, QD
     Route: 048
     Dates: start: 20101201
  2. SENSIPAR [Suspect]
     Dosage: 90 MG, QD
     Route: 048

REACTIONS (3)
  - LUPUS NEPHRITIS [None]
  - NAUSEA [None]
  - SYSTEMIC LUPUS ERYTHEMATOSUS [None]
